FAERS Safety Report 5711470-0 (Version None)
Quarter: 2008Q2

REPORT INFORMATION
  Report Type: 
  Country: None (occurrence: None)
  Receive Date: 20080421
  Receipt Date: 20080414
  Transmission Date: 20081010
  Serious: Yes (Death, Life-Threatening, Other)
  Sender: FDA-Public Use
  Company Number: JP-AVENTIS-200810405JP

PATIENT
  Age: 58 Year
  Sex: Male
  Weight: 45 kg

DRUGS (7)
  1. TAXOTERE [Suspect]
     Route: 041
     Dates: start: 20080117, end: 20080117
  2. RANDA [Concomitant]
     Route: 041
     Dates: start: 20080117, end: 20080117
  3. OXYCONTIN [Concomitant]
     Route: 048
     Dates: start: 20080112, end: 20080201
  4. FENTANYL TRANSDERMAL SYSTEM [Concomitant]
     Route: 062
     Dates: start: 20080203, end: 20080203
  5. VOLTAREN-XR [Concomitant]
     Route: 048
     Dates: start: 20080117, end: 20080201
  6. NOVAMIN                            /00013301/ [Concomitant]
     Route: 048
     Dates: start: 20080117, end: 20080123
  7. LOPEMIN [Concomitant]
     Indication: DIARRHOEA

REACTIONS (6)
  - ANOREXIA [None]
  - DIARRHOEA [None]
  - INTESTINAL ISCHAEMIA [None]
  - LIVER DISORDER [None]
  - RENAL DISORDER [None]
  - WHITE BLOOD CELL COUNT DECREASED [None]
